FAERS Safety Report 12652909 (Version 1)
Quarter: 2016Q3

REPORT INFORMATION
  Report Type: Report from Study
  Country: DE (occurrence: DE)
  Receive Date: 20160815
  Receipt Date: 20160815
  Transmission Date: 20161109
  Serious: Yes (Other)
  Sender: FDA-Public Use
  Company Number: DE-ROCHE-1810862

PATIENT
  Age: 73 Year
  Sex: Female

DRUGS (16)
  1. ESOMEPRAZOLE [Concomitant]
     Active Substance: ESOMEPRAZOLE
     Route: 065
     Dates: start: 20151001
  2. PRIVIGEN [Concomitant]
     Active Substance: HUMAN IMMUNOGLOBULIN G
     Route: 065
     Dates: start: 20131115
  3. PREGABALIN. [Concomitant]
     Active Substance: PREGABALIN
     Route: 065
     Dates: start: 20151116
  4. ALLOPURINOL. [Concomitant]
     Active Substance: ALLOPURINOL
     Route: 065
     Dates: start: 201511
  5. OBINUTUZUMAB [Suspect]
     Active Substance: OBINUTUZUMAB
     Indication: CHRONIC LYMPHOCYTIC LEUKAEMIA
     Dosage: DATE OF MOST RECENT DOSE RECIEVED ON 05/APR/2016
     Route: 042
     Dates: start: 20151026
  6. TAPENTADOL [Concomitant]
     Active Substance: TAPENTADOL
     Route: 065
     Dates: start: 20151001
  7. CANDESARTAN [Concomitant]
     Active Substance: CANDESARTAN
     Route: 065
     Dates: start: 2007
  8. ACICLOVIR [Concomitant]
     Active Substance: ACYCLOVIR
     Route: 065
     Dates: start: 20130331
  9. VENETOCLAX [Suspect]
     Active Substance: VENETOCLAX
     Indication: CHRONIC LYMPHOCYTIC LEUKAEMIA
     Dosage: DATE OF MOST RECENT DOSE RECIEVED ON /APR/2016
     Route: 048
     Dates: start: 20151124
  10. FORMOTEROL [Concomitant]
     Active Substance: FORMOTEROL
     Route: 065
     Dates: start: 20140919
  11. LEVOTHYROXIN [Concomitant]
     Active Substance: LEVOTHYROXINE
     Route: 065
     Dates: start: 2007
  12. STRONTIUM RANELATE [Concomitant]
     Active Substance: STRONTIUM RANELATE
     Route: 065
     Dates: start: 2007
  13. FUROSEMID [Concomitant]
     Active Substance: FUROSEMIDE
     Route: 065
     Dates: start: 20151001
  14. PRAVASTATIN. [Concomitant]
     Active Substance: PRAVASTATIN
     Route: 065
     Dates: start: 2007
  15. COTRIMAZOL [Concomitant]
     Route: 065
     Dates: start: 20130331
  16. MESALAZIN [Concomitant]
     Active Substance: MESALAMINE
     Route: 065
     Dates: start: 20140602

REACTIONS (1)
  - Squamous cell carcinoma [Recovered/Resolved]

NARRATIVE: CASE EVENT DATE: 201604
